FAERS Safety Report 8357830-3 (Version None)
Quarter: 2012Q2

REPORT INFORMATION
  Report Type: 
  Country: None (occurrence: None)
  Receive Date: 20120514
  Receipt Date: 20110727
  Transmission Date: 20120825
  Serious: Yes (Other)
  Sender: FDA-Public Use
  Company Number: US-ALEXION-A201100481

PATIENT
  Sex: Female

DRUGS (11)
  1. DANAZOL [Concomitant]
     Dosage: UNK
  2. MELOXICAM [Concomitant]
     Dosage: UNK
  3. SERTRALINE HYDROCHLORIDE [Concomitant]
     Dosage: 50 MG UNK
  4. AMBIEN [Concomitant]
     Dosage: UNK
  5. LOVENOX [Concomitant]
     Indication: TREATMENT NONCOMPLIANCE
  6. SOLIRIS [Suspect]
     Dosage: 900 MG, QW
     Dates: start: 20101101
  7. LORAZEPAM [Concomitant]
     Dosage: UNK
  8. SOLIRIS [Suspect]
     Dosage: 900 MG Q2W
     Route: 042
  9. SOLIRIS [Suspect]
     Indication: PAROXYSMAL NOCTURNAL HAEMOGLOBINURIA
     Dosage: 200 MG
     Route: 042
     Dates: start: 20100720
  10. ANTIDEPRESSANTS [Concomitant]
     Indication: DEPRESSION
  11. CARAFATE [Concomitant]
     Dosage: UNK

REACTIONS (12)
  - LOSS OF CONSCIOUSNESS [None]
  - FRUSTRATION [None]
  - DEPRESSION [None]
  - MENTAL DISORDER [None]
  - ANXIETY [None]
  - ROAD TRAFFIC ACCIDENT [None]
  - NAUSEA [None]
  - SUICIDAL IDEATION [None]
  - FEELING ABNORMAL [None]
  - CONDITION AGGRAVATED [None]
  - VOMITING [None]
  - DIARRHOEA [None]
